FAERS Safety Report 4964239-9 (Version None)
Quarter: 2006Q2

REPORT INFORMATION
  Report Type: 
  Country: None (occurrence: None)
  Receive Date: 20060406
  Receipt Date: 20060106
  Transmission Date: 20061013
  Serious: Yes (Death, Hospitalization)
  Sender: FDA-Public Use
  Company Number: PHEH2006US00644

PATIENT
  Age: 84 Year
  Sex: Male

DRUGS (9)
  1. ZOSYN [Concomitant]
     Indication: PERITONITIS
     Dosage: 4.5 G, Q8H
     Route: 042
     Dates: start: 20051217
  2. PROTONIX [Concomitant]
     Dosage: 40 MG, Q12H
     Route: 042
     Dates: start: 20051217
  3. LANOXIN [Concomitant]
     Indication: CARDIOMYOPATHY
     Dosage: 0.25 MG, QD
     Dates: start: 20051220
  4. LOPRESSOR [Concomitant]
     Dosage: 50 MG, Q12H
     Dates: start: 20051219
  5. ALTACE [Concomitant]
     Dosage: 5 MG, Q12H
     Dates: start: 20051219
  6. FENTANYL [Concomitant]
     Indication: PAIN
     Dosage: 25 UG, Q72H
     Route: 062
     Dates: start: 20051220
  7. ATIVAN [Concomitant]
     Indication: ABDOMINAL PAIN
  8. MORPHINE [Concomitant]
     Indication: ABDOMINAL PAIN
     Dosage: 2 MG, Q2H
  9. GLEEVEC [Suspect]
     Indication: GASTROINTESTINAL STROMAL TUMOUR
     Dosage: 400 MG, QD
     Dates: start: 20051220, end: 20051221

REACTIONS (7)
  - DEATH [None]
  - DYSPNOEA [None]
  - HALLUCINATION [None]
  - HYPERHIDROSIS [None]
  - HYPOTENSION [None]
  - INCONTINENCE [None]
  - LETHARGY [None]
